FAERS Safety Report 8860185 (Version 1)
Quarter: 2012Q4

REPORT INFORMATION
  Report Type: 
  Country: US (occurrence: US)
  Receive Date: 20121025
  Receipt Date: 20121025
  Transmission Date: 20130627
  Serious: Yes (Other)
  Sender: FDA-Public Use
  Company Number: US-PFIZER INC-2012265400

PATIENT
  Sex: Male

DRUGS (3)
  1. LYRICA [Suspect]
     Indication: PAIN
     Dosage: 75 mg, 2x/day
  2. LYRICA [Suspect]
     Dosage: 75 mg, 3x/day
  3. LYRICA [Suspect]
     Dosage: UNK

REACTIONS (7)
  - Plasma cell myeloma [Unknown]
  - Diabetes mellitus [Unknown]
  - Nerve injury [Unknown]
  - Peroneal nerve palsy [Unknown]
  - Herpes zoster [Unknown]
  - Neuropathy peripheral [Unknown]
  - Pain [Unknown]
